FAERS Safety Report 17172916 (Version 1)
Quarter: 2019Q4

REPORT INFORMATION
  Report Type: Spontaneous
  Country: US (occurrence: US)
  Receive Date: 20191218
  Receipt Date: 20191218
  Transmission Date: 20200122
  Serious: No
  Sender: FDA-Public Use
  Company Number: US-BAYER-2019-229528

PATIENT
  Age: 56 Year
  Sex: Male

DRUGS (2)
  1. CLARITIN LIQUI-GELS [Suspect]
     Active Substance: LORATADINE
     Indication: HYPERSENSITIVITY
     Dosage: 2 DF, ONCE
     Route: 048
     Dates: start: 20191213, end: 20191214
  2. CLARITIN LIQUI-GELS [Suspect]
     Active Substance: LORATADINE
     Indication: NASOPHARYNGITIS

REACTIONS (3)
  - Nausea [Recovered/Resolved]
  - Diarrhoea [Recovered/Resolved]
  - Extra dose administered [Unknown]

NARRATIVE: CASE EVENT DATE: 20191213
